FAERS Safety Report 19435242 (Version 2)
Quarter: 2021Q3

REPORT INFORMATION
  Report Type: Spontaneous
  Country: US (occurrence: US)
  Receive Date: 20210617
  Receipt Date: 20210713
  Transmission Date: 20211014
  Serious: Yes (Hospitalization, Other)
  Sender: FDA-Public Use
  Company Number: US-AUROBINDO-AUR-APL-2021-025012

PATIENT
  Age: 47 Year
  Sex: Female

DRUGS (1)
  1. IBUPROFEN TABLETS [Suspect]
     Active Substance: IBUPROFEN
     Indication: HEADACHE
     Dosage: 800 MILLIGRAM, EVERY WEEK
     Route: 065

REACTIONS (7)
  - Renal tubular acidosis [Recovered/Resolved]
  - Hyperammonaemia [Not Recovered/Not Resolved]
  - Dysarthria [Unknown]
  - Asterixis [Unknown]
  - Hypokalaemia [Recovered/Resolved]
  - Lethargy [Unknown]
  - Metabolic acidosis [Unknown]
